FAERS Safety Report 9153561 (Version 1)
Quarter: 2013Q1

REPORT INFORMATION
  Report Type: Spontaneous
  Country: US (occurrence: None)
  Receive Date: 20130305
  Receipt Date: 20130305
  Transmission Date: 20140127
  Serious: Yes (Hospitalization)
  Sender: FDA-Public Use
  Company Number: None

PATIENT
  Age: 85 Year
  Sex: Male
  Weight: 104.78 kg

DRUGS (7)
  1. GEMCITABINE [Suspect]
     Indication: CHOLANGIOCARCINOMA
     Dosage: 800 MG/M2 IV EVERY 2 WEEKS
     Route: 042
     Dates: start: 20121011, end: 20121024
  2. OXALIPLATIN [Suspect]
     Indication: CHOLANGIOCARCINOMA
     Dosage: 85 MG/M2 IV EVERY 2 WEEKS
     Route: 042
     Dates: start: 20121012, end: 20121025
  3. ERLOTINIB [Suspect]
     Indication: CHOLANGIOCARCINOMA
     Dosage: 15MG PO DAYS 3-8 + 17-22
     Route: 048
     Dates: start: 20121013, end: 20121018
  4. ODANSETRON [Concomitant]
  5. PROCHLORPERAZINE [Concomitant]
  6. PHENERGAN GEL [Concomitant]
  7. LORAZEPAM [Concomitant]

REACTIONS (5)
  - Pyrexia [None]
  - Fatigue [None]
  - Nausea [None]
  - Dermatitis acneiform [None]
  - White blood cell count decreased [None]
